FAERS Safety Report 18208442 (Version 3)
Quarter: 2020Q4

REPORT INFORMATION
  Report Type: Report from Study
  Country: BE (occurrence: BE)
  Receive Date: 20200828
  Receipt Date: 20201028
  Transmission Date: 20210113
  Serious: Yes (Hospitalization)
  Sender: FDA-Public Use
  Company Number: BE-BIOGEN-2020BI00913685

PATIENT
  Age: 60 Year
  Sex: Female

DRUGS (5)
  1. PRETERAX (PERINDOPRIL AND INDAPAMIDE) [Concomitant]
     Indication: HYPERTENSION
     Dosage: 2.5/0.625 MG
     Route: 048
     Dates: start: 20190715
  2. TRAMADOL RETARD [Concomitant]
     Active Substance: TRAMADOL
     Indication: BACK PAIN
     Route: 048
     Dates: start: 20190520
  3. TYSABRI [Suspect]
     Active Substance: NATALIZUMAB
     Indication: MULTIPLE SCLEROSIS
     Route: 065
     Dates: start: 20100601
  4. DICLOFENAC [Concomitant]
     Active Substance: DICLOFENAC
     Indication: BACK PAIN
     Route: 048
     Dates: start: 20190423
  5. VESICARE [Concomitant]
     Active Substance: SOLIFENACIN SUCCINATE
     Indication: URINARY INCONTINENCE
     Route: 048
     Dates: start: 20060726

REACTIONS (3)
  - Dizziness [Recovered/Resolved]
  - Escherichia infection [Recovered/Resolved]
  - Sensorimotor disorder [Recovered/Resolved]

NARRATIVE: CASE EVENT DATE: 20200601
